FAERS Safety Report 24323184 (Version 4)
Quarter: 2024Q3

REPORT INFORMATION
  Report Type: Spontaneous
  Country: US (occurrence: US)
  Receive Date: 20240916
  Receipt Date: 20240925
  Transmission Date: 20241016
  Serious: No
  Sender: PFIZER
  Company Number: US-PFIZER INC-202400253334

PATIENT
  Age: 57 Year
  Sex: Male

DRUGS (1)
  1. GENOTROPIN [Suspect]
     Active Substance: SOMATROPIN
     Dosage: 0.6 MG, DAILY, INJECTED
     Route: 051

REACTIONS (3)
  - Device breakage [Unknown]
  - Device material issue [Unknown]
  - Drug dose omission by device [Unknown]
